FAERS Safety Report 7387667-3 (Version None)
Quarter: 2011Q1

REPORT INFORMATION
  Report Type: 
  Country: None (occurrence: None)
  Receive Date: 20110324
  Receipt Date: 20110309
  Transmission Date: 20110831
  Serious: Yes (Other)
  Sender: FDA-Public Use
  Company Number: 2011AP000434

PATIENT
  Age: 37 Year
  Sex: Female

DRUGS (16)
  1. PHENYTOIN [Suspect]
     Dosage: 375 MG; QD; 325 MG; QD
  2. CARBAMAZEPINE [Concomitant]
  3. GABAPENTIN [Concomitant]
  4. OXCARBAZEPINE [Concomitant]
  5. TIAGABINE HCL [Concomitant]
  6. LACOSAMIDE [Suspect]
     Indication: FRONTAL LOBE EPILEPSY
     Dosage: 20 MG; QD
  7. FELBAMATE (FELBAMATE) [Concomitant]
  8. CLONAZEPAM [Concomitant]
  9. LEVETIRACETAM [Concomitant]
  10. ZONISAMIDE [Concomitant]
  11. RUFINAMIDE (RUFINAMIDE) [Concomitant]
  12. LAMOTRIGINE [Suspect]
     Indication: FRONTAL LOBE EPILEPSY
     Dosage: 500 MG; QD, 450 MG; QD
  13. ACETAZOLAMIDE SODIUM (ACETAZOLAMIDE) [Concomitant]
  14. VALPROIC ACID [Concomitant]
  15. TOPIRAMATE [Concomitant]
  16. PHENOBARBITAL (PHENOBARBITAL) [Concomitant]

REACTIONS (7)
  - DRUG INTERACTION [None]
  - NEUROTOXICITY [None]
  - ANTICONVULSANT DRUG LEVEL BELOW THERAPEUTIC [None]
  - ANTICONVULSANT DRUG LEVEL ABOVE THERAPEUTIC [None]
  - DIZZINESS [None]
  - DIPLOPIA [None]
  - BALANCE DISORDER [None]
